FAERS Safety Report 21137053 (Version 2)
Quarter: 2022Q3

REPORT INFORMATION
  Report Type: Spontaneous
  Country: FR (occurrence: FR)
  Receive Date: 20220727
  Receipt Date: 20220926
  Transmission Date: 20221027
  Serious: Yes (Hospitalization)
  Sender: FDA-Public Use
  Company Number: None

PATIENT
  Age: 82 Year
  Sex: Male

DRUGS (2)
  1. AMOXICILLIN [Suspect]
     Active Substance: AMOXICILLIN
     Indication: Infection
     Dosage: UNK (2G 3/J)
     Route: 048
     Dates: start: 20220627, end: 20220813
  2. COLCHICINE [Suspect]
     Active Substance: COLCHICINE
     Indication: Synovial fluid crystal present
     Dosage: 1 G (0.5 MG 2/J)
     Route: 048
     Dates: start: 20220627, end: 20220718

REACTIONS (1)
  - Cholestasis [Not Recovered/Not Resolved]

NARRATIVE: CASE EVENT DATE: 20220702
